FAERS Safety Report 14413396 (Version 1)
Quarter: 2018Q1

REPORT INFORMATION
  Report Type: Report from Study
  Country: CA (occurrence: CA)
  Receive Date: 20180119
  Receipt Date: 20180119
  Transmission Date: 20180509
  Serious: Yes (Hospitalization, Other)
  Sender: FDA-Public Use
  Company Number: CA-TAKEDA-2016TUS013674

PATIENT
  Age: 35 Year
  Sex: Female

DRUGS (10)
  1. GABAPENTIN. [Concomitant]
     Active Substance: GABAPENTIN
     Dosage: UNK
  2. CELEBREX [Concomitant]
     Active Substance: CELECOXIB
     Dosage: 200 MG, BID
  3. ZOPICLONE [Concomitant]
     Active Substance: ZOPICLONE
     Dosage: UNK, QD
  4. VEDOLIZUMAB [Suspect]
     Active Substance: VEDOLIZUMAB
     Dosage: 300 MG, UNK
     Route: 042
     Dates: start: 20171222
  5. IMURAN [Concomitant]
     Active Substance: AZATHIOPRINE
     Dosage: UNK, QD
  6. PROZAC [Concomitant]
     Active Substance: FLUOXETINE HYDROCHLORIDE
     Dosage: UNK, QD
  7. VEDOLIZUMAB [Suspect]
     Active Substance: VEDOLIZUMAB
     Indication: CROHN^S DISEASE
     Dosage: 300 MG, UNK
     Route: 042
     Dates: start: 20160720
  8. CLONAZEPAM. [Concomitant]
     Active Substance: CLONAZEPAM
     Dosage: 0.5 MG, QID
  9. PREDNISONE. [Concomitant]
     Active Substance: PREDNISONE
     Dosage: 15 MG, UNK
  10. PREVACID [Concomitant]
     Active Substance: LANSOPRAZOLE
     Dosage: 30 MG, BID

REACTIONS (24)
  - C-reactive protein decreased [Unknown]
  - Abdominal pain [Unknown]
  - Malaise [Unknown]
  - Balance disorder [Unknown]
  - Dysphemia [Unknown]
  - Vomiting [Not Recovered/Not Resolved]
  - Incisional hernia [Unknown]
  - Asthenia [Unknown]
  - Blood potassium decreased [Unknown]
  - Speech disorder [Unknown]
  - Influenza [Unknown]
  - Clumsiness [Unknown]
  - Crohn^s disease [Unknown]
  - Sepsis [Unknown]
  - Hypoaesthesia [Unknown]
  - Migraine [Unknown]
  - Blood sodium decreased [Unknown]
  - Arthritis infective [Unknown]
  - Loss of consciousness [Unknown]
  - Pyrexia [Unknown]
  - Abdominal pain [Unknown]
  - Somnolence [Unknown]
  - Inflammatory marker increased [Unknown]
  - Fall [Unknown]

NARRATIVE: CASE EVENT DATE: 2016
